FAERS Safety Report 8591729-2 (Version None)
Quarter: 2012Q3

REPORT INFORMATION
  Report Type: 
  Country: None (occurrence: None)
  Receive Date: 20120814
  Receipt Date: 20120808
  Transmission Date: 20120928
  Serious: Yes (Other)
  Sender: FDA-Public Use
  Company Number: PHEH2012US015606

PATIENT
  Sex: Female

DRUGS (5)
  1. CLOZARIL [Suspect]
     Dosage: 400 MG, UNK
     Dates: start: 19880101
  2. INDERAL [Concomitant]
     Dosage: UNK UKN, UNK
  3. CLOZARIL [Suspect]
     Dosage: 500 MG, UNK
  4. XANAX [Concomitant]
     Dosage: UNK UKN, UNK
     Dates: start: 20120712
  5. CLOZARIL [Suspect]
     Dosage: 300 MG
     Dates: start: 19990101

REACTIONS (8)
  - PHOTOSENSITIVITY REACTION [None]
  - NECK PAIN [None]
  - HALLUCINATION, AUDITORY [None]
  - BACK PAIN [None]
  - CONSTIPATION [None]
  - HEART RATE INCREASED [None]
  - DROOLING [None]
  - HEADACHE [None]
